FAERS Safety Report 7112486-2 (Version None)
Quarter: 2010Q4

REPORT INFORMATION
  Report Type: 
  Country: None (occurrence: None)
  Receive Date: 20101119
  Receipt Date: 20100611
  Transmission Date: 20110411
  Serious: Yes (Hospitalization, Other)
  Sender: FDA-Public Use
  Company Number: US-BAYER-201010685NA

PATIENT
  Age: 27 Year
  Sex: Female
  Weight: 118 kg

DRUGS (6)
  1. YASMIN [Suspect]
     Indication: CONTRACEPTION
     Route: 048
     Dates: start: 20060201, end: 20070501
  2. METFORMIN HCL [Concomitant]
     Dates: start: 20060101
  3. JUICE PLUS VITAMINS [Concomitant]
     Dates: start: 20070101, end: 20080101
  4. SYNTHROID [Concomitant]
     Dates: start: 20080101
  5. NEXIUM [Concomitant]
  6. PERCODAN-DEMI [Concomitant]
     Indication: PAIN

REACTIONS (11)
  - ABDOMINAL PAIN [None]
  - ABDOMINAL PAIN UPPER [None]
  - ABNORMAL LOSS OF WEIGHT [None]
  - CHEST PAIN [None]
  - CHOLECYSTITIS CHRONIC [None]
  - CHOLELITHIASIS [None]
  - CHOLESTEROSIS [None]
  - ERUCTATION [None]
  - MUSCULOSKELETAL PAIN [None]
  - NAUSEA [None]
  - PLEURISY [None]
